FAERS Safety Report 9827066 (Version 1)
Quarter: 2014Q1

REPORT INFORMATION
  Report Type: Spontaneous
  Country: US (occurrence: None)
  Receive Date: 20140115
  Receipt Date: 20140115
  Transmission Date: 20141002
  Serious: Yes (Other)
  Sender: FDA-Public Use
  Company Number: SYM-2014-14770

PATIENT
  Age: 70 Year
  Sex: Female

DRUGS (3)
  1. WELLBUTRIN XL [Suspect]
     Indication: PRODUCT USED FOR UNKNOWN INDICATION
  2. LAMICTAL [Suspect]
     Indication: PRODUCT USED FOR UNKNOWN INDICATION
  3. NAMENDA [Suspect]
     Indication: COGNITIVE DISORDER
     Route: 048
     Dates: start: 20131118, end: 20131125

REACTIONS (1)
  - Stevens-Johnson syndrome [None]
